FAERS Safety Report 4316047-X (Version None)
Quarter: 2004Q1

REPORT INFORMATION
  Report Type: 
  Country: None (occurrence: None)
  Receive Date: 20040312
  Receipt Date: 20040210
  Transmission Date: 20041129
  Serious: Yes (Death, Other)
  Sender: FDA-Public Use
  Company Number: PHBS2004JP02069

PATIENT
  Age: 60 Year
  Sex: Male
  Weight: 45 kg

DRUGS (8)
  1. GLEEVEC [Suspect]
     Indication: CHRONIC MYELOID LEUKAEMIA
     Dosage: 600 MG/D
     Route: 048
     Dates: start: 20040126, end: 20040208
  2. ERYTHROCIN [Concomitant]
     Indication: PNEUMONIA
     Dosage: 1500 MG/D
     Route: 065
     Dates: start: 20040108, end: 20040119
  3. UNASYN [Concomitant]
     Indication: PNEUMONIA
     Dosage: 6 G/D
     Route: 065
     Dates: start: 20040107, end: 20040113
  4. CARBENIN [Concomitant]
     Indication: PNEUMONIA
     Dosage: 2 G/D
     Route: 065
     Dates: start: 20040113, end: 20040121
  5. LASIX [Concomitant]
     Indication: OEDEMA
     Dosage: 20 MG/D
     Route: 048
     Dates: start: 20010601, end: 20040209
  6. DIFLUCAN [Concomitant]
     Indication: PROPHYLAXIS
     Dosage: 100 MG/D
     Route: 048
     Dates: start: 20040107, end: 20040209
  7. ZANTAC [Concomitant]
     Dosage: 150 MG/D
     Route: 048
     Dates: start: 20040117, end: 20040209
  8. TIENAM [Concomitant]
     Indication: PYREXIA
     Dosage: 2 G/D
     Route: 065
     Dates: start: 20040209, end: 20040211

REACTIONS (17)
  - ASPARTATE AMINOTRANSFERASE INCREASED [None]
  - BLOOD ALKALINE PHOSPHATASE INCREASED [None]
  - BLOOD CREATININE INCREASED [None]
  - BLOOD GLUCOSE INCREASED [None]
  - BLOOD LACTATE DEHYDROGENASE INCREASED [None]
  - BLOOD UREA INCREASED [None]
  - CONVULSION [None]
  - DEPRESSED LEVEL OF CONSCIOUSNESS [None]
  - DISSEMINATED INTRAVASCULAR COAGULATION [None]
  - FIBRIN DEGRADATION PRODUCTS INCREASED [None]
  - HAEMATOCRIT DECREASED [None]
  - HAEMOGLOBIN DECREASED [None]
  - PANCREATITIS [None]
  - PLATELET COUNT DECREASED [None]
  - PNEUMONIA [None]
  - PYREXIA [None]
  - RED BLOOD CELL COUNT DECREASED [None]
